FAERS Safety Report 23037667 (Version 4)
Quarter: 2023Q4

REPORT INFORMATION
  Report Type: Spontaneous
  Country: US (occurrence: US)
  Receive Date: 20231006
  Receipt Date: 20231128
  Transmission Date: 20240110
  Serious: Yes (Other)
  Sender: FDA-Public Use
  Company Number: US-BAYER-2023A137767

PATIENT
  Age: 34 Year
  Sex: Male

DRUGS (1)
  1. KOVALTRY [Suspect]
     Active Substance: ANTIHEMOPHILIC FACTOR, HUMAN RECOMBINANT
     Dosage: 5000 IU
     Route: 042

REACTIONS (2)
  - Haemarthrosis [Recovered/Resolved]
  - Tendonitis [None]

NARRATIVE: CASE EVENT DATE: 20230907
